FAERS Safety Report 21321894 (Version 1)
Quarter: 2022Q3

REPORT INFORMATION
  Report Type: Spontaneous
  Country: US (occurrence: US)
  Receive Date: 20220912
  Receipt Date: 20220912
  Transmission Date: 20221027
  Serious: No
  Sender: FDA-Public Use
  Company Number: US-ALLERGAN-2136726US

PATIENT
  Age: 91 Year
  Sex: Male

DRUGS (1)
  1. ANDRODERM [Suspect]
     Active Substance: TESTOSTERONE
     Indication: Secondary hypogonadism
     Dosage: UNK

REACTIONS (3)
  - Depression [Unknown]
  - Pollakiuria [Unknown]
  - Dysuria [Unknown]
